FAERS Safety Report 8278207-5 (Version None)
Quarter: 2012Q2

REPORT INFORMATION
  Report Type: 
  Country: None (occurrence: None)
  Receive Date: 20120412
  Receipt Date: 20110614
  Transmission Date: 20120825
  Serious: No
  Sender: FDA-Public Use
  Company Number: US-ASTRAZENECA-2011SE01153

PATIENT
  Age: 65 Year
  Sex: Female

DRUGS (3)
  1. TOPROL-XL [Suspect]
     Route: 048
  2. CRESTOR [Suspect]
     Route: 048
  3. NEXIUM [Suspect]
     Route: 048

REACTIONS (7)
  - FALL [None]
  - MALAISE [None]
  - BACK INJURY [None]
  - INFLUENZA [None]
  - DIABETES MELLITUS [None]
  - RIB FRACTURE [None]
  - BLOOD GLUCOSE INCREASED [None]
